FAERS Safety Report 8607025-0 (Version None)
Quarter: 2012Q3

REPORT INFORMATION
  Report Type: 
  Country: None (occurrence: None)
  Receive Date: 20120821
  Receipt Date: 20120807
  Transmission Date: 20120928
  Serious: Yes (Other)
  Sender: FDA-Public Use
  Company Number: TR-PAR PHARMACEUTICAL, INC-2012SCPR004572

PATIENT

DRUGS (6)
  1. DULOXETIME HYDROCHLORIDE [Concomitant]
     Indication: DEPRESSION
     Dosage: UNK, UNKNOWN
     Route: 065
  2. METOPROLOL TARTRATE [Concomitant]
     Indication: HYPERTENSION
     Dosage: UNK, UNKNOWN
     Route: 065
  3. ESCITALOPRAM [Concomitant]
     Indication: DEPRESSION
     Dosage: UNK, UNKNOWN
     Route: 065
  4. BUPROPION HCL [Suspect]
     Indication: DEPRESSION
     Dosage: 150 MG, / DAY
     Route: 065
  5. BUPROPION HCL [Suspect]
     Dosage: 300 MG, / DAY
     Route: 065
  6. BUPROPION HCL [Suspect]
     Dosage: 150 MG, / DAY
     Route: 065

REACTIONS (1)
  - HALLUCINATION, VISUAL [None]
